FAERS Safety Report 8209053 (Version 3)
Quarter: 2012Q4

REPORT INFORMATION
  Report Type: 
  Country: US (occurrence: US)
  Receive Date: 20111028
  Receipt Date: 20120921
  Transmission Date: 20130627
  Serious: Yes (Death, Hospitalization, Other)
  Sender: FDA-Public Use
  Company Number: US-RB-033210-11

PATIENT
  Age: 0 Year
  Sex: Male

DRUGS (5)
  1. SUBOXONE UNSPECIFIED [Suspect]
     Indication: DRUG DEPENDENCE
     Route: 064
     Dates: start: 20110304, end: 20110410
  2. SUBUTEX [Suspect]
     Indication: DRUG DEPENDENCE
     Route: 064
     Dates: start: 20110411, end: 20110516
  3. SUBUTEX [Suspect]
     Route: 064
     Dates: start: 20110516, end: 20111003
  4. PERCOCET [Suspect]
     Indication: PRODUCT USED FOR UNKNOWN INDICATION
     Dosage: Dosing details unknown
     Route: 064
  5. TOBACCO LEAF [Suspect]
     Indication: TOBACCO USER
     Dosage: Dosing details unknown
     Route: 064
     Dates: start: 20110304, end: 20111003

REACTIONS (9)
  - Foetal exposure during pregnancy [Recovered/Resolved]
  - Maternal condition affecting foetus [Recovered/Resolved]
  - Premature baby [Recovered/Resolved]
  - Neonatal respiratory distress syndrome [Fatal]
  - Infection [Fatal]
  - Vertical infection transmission [None]
  - Maternal drugs affecting foetus [None]
  - Caesarean section [None]
  - Foetal exposure during pregnancy [None]
